FAERS Safety Report 8939702 (Version 1)
Quarter: 2012Q4

REPORT INFORMATION
  Report Type: 
  Country: GB (occurrence: GB)
  Receive Date: 20121201
  Receipt Date: 20121201
  Transmission Date: 20130627
  Serious: Yes (Death, Other)
  Sender: FDA-Public Use
  Company Number: GB-ACCORD-015380

PATIENT
  Age: 91 Year
  Sex: Male

DRUGS (7)
  1. ASPIRIN [Concomitant]
  2. BISOPROLOL [Concomitant]
  3. SIMVASTATIN [Suspect]
     Indication: DRUG USE FOR UNKNOWN INDICATION
     Route: 048
     Dates: end: 20121024
  4. DOXAZOSIN [Concomitant]
  5. PERINDOPRIL [Concomitant]
  6. AMIODARONE [Suspect]
     Indication: VENTRICULAR TACHYCARDIA
     Route: 048
     Dates: start: 201012, end: 20121024
  7. FUROSEMIDE [Concomitant]

REACTIONS (2)
  - Pulmonary fibrosis [Fatal]
  - Pneumonia [Unknown]
